FAERS Safety Report 19003064 (Version 2)
Quarter: 2021Q1

REPORT INFORMATION
  Report Type: Report from Study
  Country: US (occurrence: US)
  Receive Date: 20210312
  Receipt Date: 20210323
  Transmission Date: 20210420
  Serious: Yes (Other)
  Sender: FDA-Public Use
  Company Number: US-JNJFOC-20210310101

PATIENT
  Sex: Female
  Weight: 86.4 kg

DRUGS (4)
  1. TADALAFIL. [Concomitant]
     Active Substance: TADALAFIL
  2. ELIQUIS [Concomitant]
     Active Substance: APIXABAN
  3. OPSUMIT [Suspect]
     Active Substance: MACITENTAN
     Indication: PULMONARY HYPERTENSION
     Dosage: OPSUMIT 10MG ORALLY DAILY
     Route: 048
  4. TYVASO [Concomitant]
     Active Substance: TREPROSTINIL

REACTIONS (8)
  - Gout [Unknown]
  - Abdominal discomfort [Unknown]
  - Weight decreased [Unknown]
  - Cataract [Unknown]
  - Weight increased [Unknown]
  - Systemic lupus erythematosus [Unknown]
  - Gastrointestinal sounds abnormal [Unknown]
  - Memory impairment [Unknown]
